FAERS Safety Report 22828410 (Version 2)
Quarter: 2024Q2

REPORT INFORMATION
  Report Type: Spontaneous
  Country: CN (occurrence: CN)
  Receive Date: 20230816
  Receipt Date: 20240423
  Transmission Date: 20240716
  Serious: Yes (Other)
  Sender: FDA-Public Use
  Company Number: CN-SUN PHARMACEUTICAL INDUSTRIES LTD-2023R1-381891

PATIENT
  Age: 39 Year
  Sex: Female

DRUGS (3)
  1. DOXORUBICIN [Suspect]
     Active Substance: DOXORUBICIN
     Indication: Sinus cancer metastatic
     Dosage: 100 MILLIGRAM/SQ. METER
     Route: 065
     Dates: start: 20180526
  2. DOXORUBICIN [Suspect]
     Active Substance: DOXORUBICIN
     Dosage: 50 MILLIGRAM/SQ. METER PER DAY, DAY 1-2
     Route: 065
  3. IFOSFAMIDE [Suspect]
     Active Substance: IFOSFAMIDE
     Indication: Sinus cancer metastatic
     Dosage: 12 G/M2; 2.5 G/M2 PER DAY, DAY 1-4; 2.0 G/M2 PER DAY, DAY 5
     Route: 065
     Dates: start: 20180526, end: 20180528

REACTIONS (3)
  - Nausea [Unknown]
  - Abdominal pain upper [Unknown]
  - Fatigue [Unknown]

NARRATIVE: CASE EVENT DATE: 20180528
